FAERS Safety Report 4990707-X (Version None)
Quarter: 2006Q2

REPORT INFORMATION
  Report Type: 
  Country: None (occurrence: None)
  Receive Date: 20060428
  Receipt Date: 20060414
  Transmission Date: 20061013
  Serious: Yes (Hospitalization)
  Sender: FDA-Public Use
  Company Number: 20060010USST

PATIENT
  Age: 56 Year
  Sex: Male

DRUGS (3)
  1. PROCARBAZINE CAPSULES [Suspect]
     Indication: NON-HODGKIN'S LYMPHOMA
  2. VINCRISTINE [Concomitant]
  3. LOMUSTINE [Concomitant]

REACTIONS (2)
  - MALAISE [None]
  - TOXIC EPIDERMAL NECROLYSIS [None]
